FAERS Safety Report 23181604 (Version 1)
Quarter: 2023Q4

REPORT INFORMATION
  Report Type: Spontaneous
  Country: US (occurrence: None)
  Receive Date: 20231113
  Receipt Date: 20231113
  Transmission Date: 20240109
  Serious: Yes (Other)
  Sender: FDA-Public Use
  Company Number: None

PATIENT
  Age: 66 Year
  Sex: Male
  Weight: 101.25 kg

DRUGS (3)
  1. METHYLPREDNISOLONE [Suspect]
     Active Substance: METHYLPREDNISOLONE
     Indication: Arthritis
     Dosage: OTHER QUANTITY : 1 TABLET(S);?OTHER FREQUENCY : DOSE PACK :;?
     Route: 048
  2. MELOXICAM [Concomitant]
     Active Substance: MELOXICAM
  3. ALEVE [Concomitant]
     Active Substance: NAPROXEN SODIUM

REACTIONS (6)
  - Product packaging issue [None]
  - Product label confusion [None]
  - Product packaging confusion [None]
  - Product label issue [None]
  - Wrong schedule [None]
  - Product use complaint [None]

NARRATIVE: CASE EVENT DATE: 20231113
